FAERS Safety Report 15712031 (Version 4)
Quarter: 2019Q2

REPORT INFORMATION
  Report Type: Spontaneous
  Country: US (occurrence: US)
  Receive Date: 20181212
  Receipt Date: 20190425
  Transmission Date: 20190711
  Serious: Yes (Other)
  Sender: FDA-Public Use
  Company Number: US-009507513-1812USA004374

PATIENT
  Age: 69 Year
  Sex: Female

DRUGS (9)
  1. CYCLOPHOSPHAMIDE. [Concomitant]
     Active Substance: CYCLOPHOSPHAMIDE
     Indication: COLORECTAL CANCER
     Dosage: UNK
  2. IBUPROFEN. [Concomitant]
     Active Substance: IBUPROFEN
  3. HYDROMORPHONE [Concomitant]
     Active Substance: HYDROMORPHONE
  4. GRANULOCYTE-MACROPHAGE COLONY STIMULATING FACTOR (UNSPECIFIED) [Concomitant]
     Active Substance: GRANULOCYTE-MACROPHAGE COLONY-STIMULATING FACTOR
     Indication: COLORECTAL CANCER
     Dosage: UNK
  5. TRIAMTERENE. [Concomitant]
     Active Substance: TRIAMTERENE
  6. AMLODIPINE [Concomitant]
     Active Substance: AMLODIPINE BESYLATE
  7. KEYTRUDA [Suspect]
     Active Substance: PEMBROLIZUMAB
     Indication: COLORECTAL CANCER
     Dosage: 200 MILLIGRAM, Q3 WEEKS
  8. HYDROCHLOROTHIAZIDE. [Concomitant]
     Active Substance: HYDROCHLOROTHIAZIDE
  9. ONDANSETRON [Concomitant]
     Active Substance: ONDANSETRON

REACTIONS (2)
  - Off label use [Unknown]
  - Autoimmune haemolytic anaemia [Recovered/Resolved]
